FAERS Safety Report 8264048-1 (Version None)
Quarter: 2012Q2

REPORT INFORMATION
  Report Type: 
  Country: None (occurrence: None)
  Receive Date: 20120406
  Receipt Date: 20120327
  Transmission Date: 20120825
  Serious: No
  Sender: FDA-Public Use
  Company Number: US-BIOGENIDEC-2012BI010853

PATIENT
  Age: 23 Year
  Sex: Female

DRUGS (1)
  1. TYSABRI [Suspect]
     Indication: MULTIPLE SCLEROSIS
     Route: 042
     Dates: start: 20110923

REACTIONS (6)
  - APHASIA [None]
  - HEMIPARESIS [None]
  - MOTOR DYSFUNCTION [None]
  - TREMOR [None]
  - DYSGRAPHIA [None]
  - GAIT DISTURBANCE [None]
